FAERS Safety Report 7521692-4 (Version None)
Quarter: 2011Q2

REPORT INFORMATION
  Report Type: 
  Country: None (occurrence: None)
  Receive Date: 20110603
  Receipt Date: 20110530
  Transmission Date: 20111010
  Serious: Yes (Other)
  Sender: FDA-Public Use
  Company Number: BE-ABBOTT-11P-013-0727883-00

PATIENT
  Age: 83 Year
  Sex: Male

DRUGS (1)
  1. LEUPROLIDE ACETATE [Suspect]
     Indication: PROSTATE CANCER
     Dates: start: 20100818, end: 20110223

REACTIONS (3)
  - HALLUCINATION [None]
  - DELIRIUM [None]
  - DEPRESSION [None]
